FAERS Safety Report 6685941-7 (Version None)
Quarter: 2010Q2

REPORT INFORMATION
  Report Type: 
  Country: None (occurrence: None)
  Receive Date: 20100415
  Receipt Date: 20100415
  Transmission Date: 20101027
  Serious: Yes (Hospitalization)
  Sender: FDA-Public Use
  Company Number: None

PATIENT
  Age: 79 Year
  Sex: Female

DRUGS (1)
  1. VANCOMYCIN [Suspect]

REACTIONS (3)
  - INCORRECT DOSE ADMINISTERED [None]
  - MEDICATION ERROR [None]
  - RENAL FAILURE ACUTE [None]
